APPROVED DRUG PRODUCT: FELODIPINE
Active Ingredient: FELODIPINE
Strength: 5MG
Dosage Form/Route: TABLET, EXTENDED RELEASE;ORAL
Application: A204800 | Product #002 | TE Code: AB
Applicant: YUNG SHIN PHARMACEUTICAL INDUSTRIAL CO LTD
Approved: Apr 29, 2019 | RLD: No | RS: No | Type: RX